FAERS Safety Report 23997403 (Version 1)
Quarter: 2024Q2

REPORT INFORMATION
  Report Type: Spontaneous
  Country: US (occurrence: US)
  Receive Date: 20240621
  Receipt Date: 20240621
  Transmission Date: 20240716
  Serious: No
  Sender: FDA-Public Use
  Company Number: US-BRAEBURN-US-BRA-24-000272

PATIENT
  Sex: Male
  Weight: 99.773 kg

DRUGS (1)
  1. BRIXADI [Suspect]
     Active Substance: BUPRENORPHINE
     Indication: Drug use disorder
     Dosage: 128 MILLIGRAM/0.36ML, MONTHLY
     Route: 058

REACTIONS (2)
  - Adverse event [Unknown]
  - Therapeutic response shortened [Unknown]
